FAERS Safety Report 4700280-9 (Version None)
Quarter: 2005Q2

REPORT INFORMATION
  Report Type: 
  Country: None (occurrence: None)
  Receive Date: 20050627
  Receipt Date: 20050622
  Transmission Date: 20051028
  Serious: Yes (Death)
  Sender: FDA-Public Use
  Company Number: PHBS2005JP08938

PATIENT
  Age: 62 Year
  Sex: Female

DRUGS (3)
  1. CARBAMAZEPINE [Suspect]
     Indication: CONVULSION
     Route: 065
     Dates: start: 20020301, end: 20020901
  2. PHENYTOIN [Suspect]
     Indication: CONVULSION
     Route: 065
     Dates: end: 20020301
  3. ANTIDIABETICS [Concomitant]
     Indication: DIABETES MELLITUS
     Route: 048

REACTIONS (2)
  - HUMORAL IMMUNE DEFECT [None]
  - PNEUMONIA ASPIRATION [None]
